FAERS Safety Report 8035907-X (Version None)
Quarter: 2012Q1

REPORT INFORMATION
  Report Type: 
  Country: None (occurrence: None)
  Receive Date: 20120105
  Receipt Date: 20111226
  Transmission Date: 20120608
  Serious: Yes (Other)
  Sender: FDA-Public Use
  Company Number: 7103915

PATIENT
  Age: 11 Year
  Sex: Male

DRUGS (2)
  1. ALEGRA (ALLEGRA) (FEXOFENADINE) [Concomitant]
  2. LEVOTHYROXINE SODIUM [Suspect]
     Indication: PRODUCT USED FOR UNKNOWN INDICATION
     Dosage: (1 IN 1 D)
     Dates: start: 20111210, end: 20111225

REACTIONS (2)
  - ASTHMATIC CRISIS [None]
  - RHINITIS [None]
